FAERS Safety Report 11637694 (Version 1)
Quarter: 2015Q4

REPORT INFORMATION
  Report Type: Spontaneous
  Country: JP (occurrence: JP)
  Receive Date: 20151016
  Receipt Date: 20151016
  Transmission Date: 20160304
  Serious: Yes (Death)
  Sender: FDA-Public Use
  Company Number: JP-DSJP-DSJ-2015-132178

PATIENT

DRUGS (8)
  1. KALISERUM [Concomitant]
     Dosage: UNK
     Route: 048
  2. FEBURIC [Concomitant]
     Active Substance: FEBUXOSTAT
     Dosage: 10 MG, QD
     Route: 048
  3. SPIRONOLACTONE. [Concomitant]
     Active Substance: SPIRONOLACTONE
     Dosage: 25 MG, QD
     Route: 048
  4. AMLODIPINE                         /00972402/ [Concomitant]
     Active Substance: AMLODIPINE BESYLATE
     Dosage: 5 MG, QD
     Route: 048
  5. ONGLYZA [Concomitant]
     Active Substance: SAXAGLIPTIN HYDROCHLORIDE
     Dosage: 2.5 MG, QD
     Route: 048
  6. OLMETEC TABLETS 20MG [Concomitant]
     Active Substance: OLMESARTAN MEDOXOMIL
     Dosage: 20 MG, QD
     Route: 065
  7. SAMSCA [Concomitant]
     Active Substance: TOLVAPTAN
     Dosage: 7.5 MG, QD
     Route: 048
  8. LIXIANA TABLETS 60MG [Suspect]
     Active Substance: EDOXABAN TOSILATE MONOHYDRATE
     Indication: ATRIAL FIBRILLATION
     Dosage: 30 MG, QD
     Route: 048
     Dates: start: 20151007

REACTIONS (1)
  - Cardio-respiratory arrest [Fatal]

NARRATIVE: CASE EVENT DATE: 20151009
